FAERS Safety Report 17764728 (Version 2)
Quarter: 2020Q2

REPORT INFORMATION
  Report Type: Spontaneous
  Country: AM (occurrence: AM)
  Receive Date: 20200511
  Receipt Date: 20200512
  Transmission Date: 20200714
  Serious: Yes (Death, Other)
  Sender: FDA-Public Use
  Company Number: AM-ROCHE-2593749

PATIENT
  Age: 67 Year
  Sex: Female

DRUGS (4)
  1. MABTHERA [Suspect]
     Active Substance: RITUXIMAB
     Indication: CHRONIC LYMPHOCYTIC LEUKAEMIA
     Route: 041
     Dates: start: 20200427
  2. ADRENALINE [EPINEPHRINE] [Concomitant]
     Active Substance: EPINEPHRINE
  3. DEXAMETHAZON [Concomitant]
     Active Substance: DEXAMETHASONE
  4. BENDAMUSTINE [Suspect]
     Active Substance: BENDAMUSTINE
     Indication: CHRONIC LYMPHOCYTIC LEUKAEMIA
     Route: 065
     Dates: start: 20200428

REACTIONS (14)
  - Intentional product use issue [Unknown]
  - Granulomatous lymphadenitis [Unknown]
  - Leukopenia [Unknown]
  - Tumour lysis syndrome [Unknown]
  - Vena cava thrombosis [Unknown]
  - Off label use [Unknown]
  - Pancytopenia [Unknown]
  - Lymphadenopathy [Unknown]
  - Death [Fatal]
  - C-reactive protein increased [Unknown]
  - Angioedema [Unknown]
  - Thrombocytopenia [Unknown]
  - Cardiopulmonary failure [Fatal]
  - Neutropenia [Unknown]

NARRATIVE: CASE EVENT DATE: 20200427
